FAERS Safety Report 5868343-2 (Version None)
Quarter: 2008Q3

REPORT INFORMATION
  Report Type: 
  Country: None (occurrence: None)
  Receive Date: 20080903
  Receipt Date: 20080825
  Transmission Date: 20090109
  Serious: Yes (Other)
  Sender: FDA-Public Use
  Company Number: US-JNJFOC-20080407449

PATIENT
  Sex: Male
  Weight: 86.18 kg

DRUGS (1)
  1. ULTRAM ER [Suspect]
     Indication: BACK PAIN
     Route: 048

REACTIONS (2)
  - ERECTILE DYSFUNCTION [None]
  - URINARY RETENTION [None]
